FAERS Safety Report 11376514 (Version 1)
Quarter: 2015Q3

REPORT INFORMATION
  Report Type: Spontaneous
  Country: FR (occurrence: FR)
  Receive Date: 20150813
  Receipt Date: 20150813
  Transmission Date: 20151125
  Serious: Yes (Death, Hospitalization, Other)
  Sender: FDA-Public Use
  Company Number: FR-ASTRAZENECA-2015SE76304

PATIENT
  Age: 3252 Week
  Sex: Male

DRUGS (12)
  1. GENTAMICINE [Suspect]
     Active Substance: GENTAMICIN
     Indication: BACTERIAL SEPSIS
     Dosage: PANPHARMA, 600 MG, UNKNOWN
     Route: 041
     Dates: start: 20150519, end: 20150519
  2. HEXABRIX [Suspect]
     Active Substance: IOXAGLATE MEGLUMINE\IOXAGLATE SODIUM
     Indication: ARTERIOGRAM CORONARY
     Route: 042
     Dates: start: 20150515
  3. GENTAMICINE [Suspect]
     Active Substance: GENTAMICIN
     Indication: BACTERIAL SEPSIS
     Dosage: PANPHARMA, 600 MG, UNKNOWN
     Route: 041
     Dates: start: 20150526, end: 20150527
  4. PIPERACILLIN, TAZOBACTAM [Suspect]
     Active Substance: PIPERACILLIN SODIUM\TAZOBACTAM SODIUM
     Indication: BACTERIAL SEPSIS
     Dosage: MYLAN
     Route: 042
     Dates: start: 20150519, end: 20150523
  5. CORDARONE [Suspect]
     Active Substance: AMIODARONE HYDROCHLORIDE
     Indication: ARRHYTHMIA
     Dosage: 300 MG SLOW INTRAVENOUSE AND 1500 MG ELECTRIC SYRINGE
     Route: 042
     Dates: start: 20150515, end: 20150515
  6. ZYVOXID [Suspect]
     Active Substance: LINEZOLID
     Indication: BACTERIAL SEPSIS
     Route: 041
     Dates: start: 20150526, end: 20150527
  7. BACTRIM [Suspect]
     Active Substance: SULFAMETHOXAZOLE\TRIMETHOPRIM
     Indication: PROSTATITIS
     Route: 048
     Dates: start: 20150511, end: 20150512
  8. MEROPENEM. [Suspect]
     Active Substance: MEROPENEM
     Indication: BACTERIAL SEPSIS
     Dosage: MYLAN
     Route: 041
     Dates: start: 20150601, end: 20150604
  9. GENTAMICINE [Suspect]
     Active Substance: GENTAMICIN
     Indication: BACTERIAL SEPSIS
     Dosage: PANPHARMA, 600 MG, UNKNOWN
     Route: 041
     Dates: start: 20150601, end: 20150604
  10. MEROPENEM. [Suspect]
     Active Substance: MEROPENEM
     Indication: BACTERIAL SEPSIS
     Dosage: MYLAN
     Route: 041
     Dates: start: 20150526, end: 20150527
  11. ZYVOXID [Suspect]
     Active Substance: LINEZOLID
     Indication: BACTERIAL SEPSIS
     Route: 041
     Dates: start: 20150601, end: 20150604
  12. INEXIUM [Suspect]
     Active Substance: ESOMEPRAZOLE
     Indication: ULCER
     Route: 048
     Dates: start: 20150515, end: 20150714

REACTIONS (4)
  - Septic shock [Unknown]
  - Drug reaction with eosinophilia and systemic symptoms [Fatal]
  - Atrial fibrillation [Unknown]
  - Haemolytic anaemia [Unknown]

NARRATIVE: CASE EVENT DATE: 20150602
